FAERS Safety Report 25744746 (Version 2)
Quarter: 2025Q4

REPORT INFORMATION
  Report Type: Report from Study
  Country: CA (occurrence: CA)
  Receive Date: 20250901
  Receipt Date: 20251223
  Transmission Date: 20260117
  Serious: Yes (Other)
  Sender: CELLTRION
  Company Number: CA-CELLTRION INC.-2025CA026745

PATIENT

DRUGS (4)
  1. INFLIXIMAB-DYYB [Suspect]
     Active Substance: INFLIXIMAB-DYYB
     Indication: Colitis ulcerative
     Dosage: LOADING DOSE - 300 MG - IV (INTRAVENOUS) (STOP DATE: UNK 2025)
     Route: 042
     Dates: start: 20250708, end: 2025
  2. INFLIXIMAB-DYYB [Suspect]
     Active Substance: INFLIXIMAB-DYYB
     Dosage: HER WEEK 2 INDUCTION DOSE WAS ON 22JUL2025
     Dates: start: 20250722
  3. INFLIXIMAB-DYYB [Suspect]
     Active Substance: INFLIXIMAB-DYYB
     Dosage: HER WEEK 6 INDUCTION DOSE 3 DAYS LATE
  4. INFLIXIMAB [Suspect]
     Active Substance: INFLIXIMAB
     Indication: Colitis ulcerative
     Dosage: MAINTENANCE - 120 MG - SC  (SUBCUTANEOUS) EVERY 2 WEEKS
     Route: 058
     Dates: start: 20250918

REACTIONS (13)
  - Colitis ulcerative [Unknown]
  - Joint stiffness [Unknown]
  - Inflammation [Unknown]
  - Pain [Unknown]
  - Haematochezia [Unknown]
  - Pain in extremity [Unknown]
  - Pain in extremity [Recovering/Resolving]
  - Malaise [Unknown]
  - Bone pain [Unknown]
  - Frequent bowel movements [Recovering/Resolving]
  - Treatment delayed [Unknown]
  - Overdose [Unknown]
  - Therapy cessation [Unknown]
